FAERS Safety Report 23245874 (Version 2)
Quarter: 2023Q4

REPORT INFORMATION
  Report Type: Spontaneous
  Country: CN (occurrence: CN)
  Receive Date: 20231130
  Receipt Date: 20231205
  Transmission Date: 20240109
  Serious: Yes (Hospitalization)
  Sender: FDA-Public Use
  Company Number: CN-002147023-NVSC2023CN251498

PATIENT
  Age: 53 Year
  Sex: Female
  Weight: 65 kg

DRUGS (2)
  1. EVEROLIMUS [Suspect]
     Active Substance: EVEROLIMUS
     Indication: Non-Hodgkin^s lymphoma
     Dosage: 10 MG, QD
     Route: 048
     Dates: start: 20231030, end: 20231030
  2. GEMCITABINE HYDROCHLORIDE [Suspect]
     Active Substance: GEMCITABINE HYDROCHLORIDE
     Indication: Non-Hodgkin^s lymphoma
     Dosage: 1.6 G, QD
     Route: 041
     Dates: start: 20231030, end: 20231030

REACTIONS (3)
  - Platelet count decreased [Recovering/Resolving]
  - Haemoglobin abnormal [Recovering/Resolving]
  - Red blood cell count abnormal [Recovering/Resolving]

NARRATIVE: CASE EVENT DATE: 20231110
